FAERS Safety Report 9837461 (Version 4)
Quarter: 2015Q1

REPORT INFORMATION
  Report Type: Spontaneous
  Country: US (occurrence: US)
  Receive Date: 20140123
  Receipt Date: 20140214
  Transmission Date: 20150721
  Serious: Yes (Other)
  Sender: FDA-Public Use
  Company Number: US-MYLANLABS-2014S1000883

PATIENT
  Age: 68 Year
  Sex: Female
  Weight: 113.4 kg

DRUGS (6)
  1. BUPROPION HYDROCHLORIDE EXTENDED RELEASE (XL) [Suspect]
     Active Substance: BUPROPION HYDROCHLORIDE
     Indication: MAJOR DEPRESSION
     Route: 048
     Dates: start: 201311, end: 20140106
  2. EFFEXOR [Concomitant]
     Active Substance: VENLAFAXINE HYDROCHLORIDE
  3. LEVOTHYROXINE [Concomitant]
     Active Substance: LEVOTHYROXINE
  4. KELP /01045501/ [Concomitant]
     Active Substance: FUCUS VESICULOSUS
  5. FLAXSEED [Concomitant]
     Active Substance: FLAX SEED
  6. FISH OIL [Concomitant]
     Active Substance: FISH OIL

REACTIONS (9)
  - Depressive symptom [Recovered/Resolved]
  - Mental impairment [Recovered/Resolved]
  - Crying [Recovered/Resolved]
  - Depressed mood [Recovered/Resolved]
  - Unevaluable event [Recovered/Resolved]
  - Anger [Recovered/Resolved]
  - Personality change [Recovered/Resolved]
  - Suicidal ideation [Recovered/Resolved]
  - Feeling of despair [Recovered/Resolved]

NARRATIVE: CASE EVENT DATE: 201311
